FAERS Safety Report 4850954-4 (Version None)
Quarter: 2005Q4

REPORT INFORMATION
  Report Type: 
  Country: None (occurrence: None)
  Receive Date: 20051209
  Receipt Date: 20051209
  Transmission Date: 20060501
  Serious: Yes (Other)
  Sender: FDA-Public Use
  Company Number: None

PATIENT
  Age: 59 Year
  Sex: Male
  Weight: 56 kg

DRUGS (2)
  1. COUMADIN [Suspect]
     Indication: SUPERIOR VENA CAVAL OCCLUSION
     Dates: start: 20050525, end: 20050816
  2. COUMADIN [Suspect]

REACTIONS (3)
  - COAGULOPATHY [None]
  - ECCHYMOSIS [None]
  - INTERNATIONAL NORMALISED RATIO INCREASED [None]
